FAERS Safety Report 4722038-7 (Version None)
Quarter: 2005Q3

REPORT INFORMATION
  Report Type: 
  Country: None (occurrence: None)
  Receive Date: 20050722
  Receipt Date: 20050517
  Transmission Date: 20060218
  Serious: Yes (Life-Threatening, Hospitalization)
  Sender: FDA-Public Use
  Company Number: DE-ROCHE-404999

PATIENT
  Age: 50 Year
  Sex: Female

DRUGS (58)
  1. VALCYTE [Suspect]
     Indication: ANTIVIRAL PROPHYLAXIS
     Route: 065
     Dates: start: 20050412, end: 20050607
  2. MYCOPHENOLATE MOFETIL [Suspect]
     Route: 042
     Dates: start: 20050406, end: 20050411
  3. MYCOPHENOLATE MOFETIL [Suspect]
     Route: 048
     Dates: start: 20050412
  4. MYCOPHENOLATE MOFETIL [Suspect]
     Dosage: DOSE LOWERED DUE TO NEUTROPENIA AND PNEUMONIA.
     Route: 048
  5. TACROLIMUS [Suspect]
     Dosage: ADJUSTED TO REACH PREDEFINED TARGET LEVELS
     Route: 048
     Dates: start: 20050407, end: 20050420
  6. TACROLIMUS [Suspect]
     Dosage: TREATMENT OF REJECTION
     Route: 048
     Dates: start: 20050421, end: 20050427
  7. TACROLIMUS [Suspect]
     Dosage: ADJUSTED TO REACH PREDEFINED TARGET LEVELS
     Route: 048
     Dates: start: 20050428, end: 20050430
  8. TACROLIMUS [Suspect]
     Dosage: TREATMENT OF REJECTION
     Route: 048
     Dates: start: 20050501
  9. METHYLPREDNISOLONE [Suspect]
     Route: 065
     Dates: start: 20050406, end: 20050406
  10. METHYLPREDNISOLONE [Suspect]
     Dosage: TREATMENT OF REJECTION
     Route: 065
     Dates: start: 20050421, end: 20050423
  11. PREDNISONE [Suspect]
     Dosage: TAPERED ACCORDING TO LOCAL PROTOCOL
     Route: 065
     Dates: start: 20050407
  12. CARBAMAZEPINE [Suspect]
     Indication: CONVULSION PROPHYLAXIS
     Route: 065
     Dates: start: 20050518, end: 20050520
  13. CARBAMAZEPINE [Suspect]
     Route: 065
     Dates: start: 20050525, end: 20050607
  14. PHENYTOIN [Concomitant]
     Route: 065
     Dates: start: 20050515, end: 20050519
  15. ACETYLCYSTEINE [Concomitant]
     Dates: start: 20050412
  16. TPN ELECTROLYTES IN PLASTIC CONTAINER [Concomitant]
     Dates: start: 20050408, end: 20050410
  17. ANTITHROMBIN III [Concomitant]
     Dates: start: 20050406, end: 20050411
  18. HEPARIN [Concomitant]
     Indication: HAEMORRHAGE
     Dates: start: 20050409, end: 20050412
  19. TRIMETHOPRIM/SULFAMETHOXAZOLE DS [Concomitant]
     Dates: start: 20050408, end: 20050503
  20. BIFITERAL [Concomitant]
     Dates: start: 20050414, end: 20050422
  21. CERNEVIT-12 [Concomitant]
     Dates: start: 20050408, end: 20050410
  22. CIPROFLOXACIN [Concomitant]
     Dates: start: 20050418, end: 20050426
  23. CEFOTAXIM [Concomitant]
     Indication: INFECTION PROPHYLAXIS
     Dates: start: 20050406, end: 20050412
  24. METRONIDAZOLE [Concomitant]
     Indication: INFECTION PROPHYLAXIS
     Dates: start: 20050406, end: 20050412
  25. GANCICLOVIR [Concomitant]
     Indication: INFECTION PROPHYLAXIS
     Dates: start: 20050406, end: 20050410
  26. L-ALANYL-L-GLUTAMIN [Concomitant]
     Dates: start: 20050406, end: 20050408
  27. PIRITRAMID [Concomitant]
     Dates: start: 20050406, end: 20050425
  28. PROPOFOL [Concomitant]
     Dates: start: 20050406, end: 20050407
  29. NADROPARIN [Concomitant]
     Indication: THROMBOSIS PROPHYLAXIS
     Dates: start: 20050412
  30. ALBUMIN (HUMAN) [Concomitant]
     Dates: start: 20050409, end: 20050417
  31. HYDROCHLOROTHIAZID [Concomitant]
     Dates: start: 20050423, end: 20050426
  32. INSULIN [Concomitant]
     Dates: start: 20050406, end: 20050407
  33. PHYTOMENADION [Concomitant]
     Dates: start: 20050408, end: 20050408
  34. FUROSEMIDE [Concomitant]
     Dates: start: 20050406, end: 20050428
  35. MANNITOL [Concomitant]
     Dates: start: 20050407, end: 20050407
  36. MAGNESIUM [Concomitant]
     Dates: start: 20050406, end: 20050406
  37. NYSTATIN [Concomitant]
     Indication: ANTIFUNGAL PROPHYLAXIS
     Dates: start: 20050406, end: 20050410
  38. AMBROXOL [Concomitant]
     Dates: start: 20050406, end: 20050411
  39. NACL [Concomitant]
     Dates: start: 20050409, end: 20050428
  40. NORMOFUNDIN [Concomitant]
     Indication: PARENTERAL NUTRITION
     Dates: start: 20050406, end: 20050409
  41. METAMIZOL [Concomitant]
     Dates: start: 20050406, end: 20050501
  42. PYRIDOXINE + THIAMINE [Concomitant]
     Indication: VITAMIN B COMPLEX DEFICIENCY
     Dates: start: 20050412
  43. SODIUM PHOSPHATE [Concomitant]
     Dates: start: 20050408, end: 20050408
  44. FUROSEMIDE/SPIRONOLACTONE [Concomitant]
     Dates: start: 20050407, end: 20050409
  45. PANTOPRAZOL [Concomitant]
     Dates: start: 20050406
  46. CLONIDIN [Concomitant]
     Dates: start: 20050406, end: 20050430
  47. RINGER'S INJECTION [Concomitant]
     Dates: start: 20050406, end: 20050429
  48. TRAMADOL HCL [Concomitant]
     Dates: start: 20050428, end: 20050502
  49. APROTININ [Concomitant]
     Indication: HAEMORRHAGE
     Dates: start: 20050406, end: 20050406
  50. MUPIROCIN [Concomitant]
     Indication: ANTIBIOTIC PROPHYLAXIS
     Dates: start: 20050408, end: 20050411
  51. TORSEMIDE [Concomitant]
     Dates: start: 20050412, end: 20050426
  52. URSODEOXYCHOLIC ACID [Concomitant]
     Dates: start: 20050419
  53. VANCOMYCIN [Concomitant]
     Dates: start: 20050426, end: 20050502
  54. VALGANCICLOVIR [Concomitant]
     Indication: INFECTION PROPHYLAXIS
     Dates: start: 20050412
  55. ZOLPIDEM TARTRATE [Concomitant]
     Indication: SLEEP DISORDER
     Dates: start: 20050413, end: 20050422
  56. IMIPENEM/CILASTATIN SODIUM [Concomitant]
     Indication: INFECTION
     Dates: start: 20050426, end: 20050502
  57. SIMVASTATIN [Concomitant]
     Dates: start: 20050522
  58. ACARBOSE [Concomitant]
     Dates: start: 20050526

REACTIONS (6)
  - BLOOD CREATININE INCREASED [None]
  - BLOOD UREA INCREASED [None]
  - NEUTROPENIA [None]
  - PNEUMONIA [None]
  - SUBDURAL HAEMATOMA [None]
  - SYNCOPE [None]
